FAERS Safety Report 7266917-8 (Version None)
Quarter: 2011Q1

REPORT INFORMATION
  Report Type: 
  Country: None (occurrence: None)
  Receive Date: 20110120
  Receipt Date: 20101217
  Transmission Date: 20110831
  Serious: Yes (Hospitalization, Other)
  Sender: FDA-Public Use
  Company Number: 001#2#2008-00549

PATIENT
  Sex: Male

DRUGS (2)
  1. KEPPRA [Suspect]
     Dosage: 500 MG TID ORAL
     Route: 048
     Dates: start: 20070101
  2. NEUPRO [Suspect]
     Indication: RESTLESS LEGS SYNDROME
     Dosage: 4 MG QD TRANSDERMAL; TRANSDERMAL
     Route: 062

REACTIONS (5)
  - HEPATIC NEOPLASM MALIGNANT [None]
  - BILIARY NEOPLASM [None]
  - GAMMA-GLUTAMYLTRANSFERASE INCREASED [None]
  - MUSCLE TWITCHING [None]
  - DRUG EFFECT DECREASED [None]
